FAERS Safety Report 4354746-4 (Version None)
Quarter: 2004Q2

REPORT INFORMATION
  Report Type: 
  Country: None (occurrence: None)
  Receive Date: 20040504
  Receipt Date: 20040419
  Transmission Date: 20050107
  Serious: Yes (Hospitalization)
  Sender: FDA-Public Use
  Company Number: 2004-DE-02228DE

PATIENT
  Age: 33 Year
  Sex: Female

DRUGS (3)
  1. MICARDIS [Suspect]
     Dosage: 1120 MG (80 MG, 1X14 TABLETS) PO; (ONCE)
     Route: 048
  2. MICARDIS HCT [Suspect]
     Dosage: 80MG, 1X16 TABLETS); PO ONCE
     Route: 048
  3. IBUPROFEN [Suspect]
     Dosage: 4000 MG (400 MG, 1X10 TABLETS) PO
     Route: 048

REACTIONS (2)
  - BRADYCARDIA [None]
  - SUICIDE ATTEMPT [None]
